FAERS Safety Report 4777827-X (Version None)
Quarter: 2005Q3

REPORT INFORMATION
  Report Type: 
  Country: None (occurrence: None)
  Receive Date: 20050915
  Receipt Date: 20050826
  Transmission Date: 20060218
  Serious: Yes (Death, Other)
  Sender: FDA-Public Use
  Company Number: JP_050707131

PATIENT
  Age: 51 Year
  Sex: Male

DRUGS (2)
  1. GEMZAR [Suspect]
     Indication: PANCREATIC CARCINOMA METASTATIC
     Dosage: 800 MG EVERY OTHER WEEK
  2. OXALIPLATIN [Concomitant]

REACTIONS (8)
  - ANGIOPATHY [None]
  - DUODENAL ULCER HAEMORRHAGE [None]
  - DYSGEUSIA [None]
  - FAECAL INCONTINENCE [None]
  - HEPATIC CANCER METASTATIC [None]
  - INFUSION SITE PAIN [None]
  - SENSORY DISTURBANCE [None]
  - THROMBOPHLEBITIS [None]
